FAERS Safety Report 8919421 (Version 1)
Quarter: 2012Q4

REPORT INFORMATION
  Report Type: 
  Country: US (occurrence: US)
  Receive Date: 20121121
  Receipt Date: 20121121
  Transmission Date: 20130627
  Serious: No
  Sender: FDA-Public Use
  Company Number: US-009507513-1211USA007805

PATIENT
  Age: 6 Year
  Sex: Female

DRUGS (2)
  1. POSACONAZOLE [Suspect]
     Indication: ACUTE MYELOID LEUKAEMIA
     Dosage: 140 mg, q6h
  2. SORAFENIB [Interacting]
     Indication: PROPHYLAXIS
     Dosage: 200 mg/m2, UNK

REACTIONS (1)
  - Drug interaction [Unknown]
